FAERS Safety Report 8765421 (Version 2)
Quarter: 2012Q4

REPORT INFORMATION
  Report Type: 
  Country: IT (occurrence: IT)
  Receive Date: 20120903
  Receipt Date: 20121011
  Transmission Date: 20130627
  Serious: Yes (Other)
  Sender: FDA-Public Use
  Company Number: IT-PFIZER INC-2012215816

PATIENT
  Age: 26 Year
  Sex: Female

DRUGS (1)
  1. FRONTAL [Suspect]
     Indication: PANIC ATTACK
     Dosage: 1 DF, daily
     Route: 048
     Dates: start: 20120530, end: 20120607

REACTIONS (3)
  - Lumbosacral plexus injury [Unknown]
  - Fall [Unknown]
  - Vertigo [Unknown]
